FAERS Safety Report 7221500-5 (Version None)
Quarter: 2011Q1

REPORT INFORMATION
  Report Type: 
  Country: None (occurrence: None)
  Receive Date: 20110112
  Receipt Date: 20110105
  Transmission Date: 20110831
  Serious: Yes (Hospitalization)
  Sender: FDA-Public Use
  Company Number: PHHY2010US48419

PATIENT
  Sex: Female
  Weight: 54.55 kg

DRUGS (2)
  1. EXJADE [Suspect]
     Indication: MYELODYSPLASTIC SYNDROME
     Dosage: 1125 MG, UNK
     Route: 048
     Dates: start: 20091223
  2. EXJADE [Suspect]
     Dosage: 1250 MG, UNK
     Route: 048
     Dates: end: 20110101

REACTIONS (2)
  - BACK PAIN [None]
  - PNEUMONIA [None]
